FAERS Safety Report 11857080 (Version 17)
Quarter: 2017Q3

REPORT INFORMATION
  Report Type: Spontaneous
  Country: US (occurrence: US)
  Receive Date: 20151221
  Receipt Date: 20170927
  Transmission Date: 20171127
  Serious: Yes (Death, Other)
  Sender: FDA-Public Use
  Company Number: US-PFIZER INC-2015407938

PATIENT
  Age: 52 Year
  Sex: Female
  Weight: 93.88 kg

DRUGS (14)
  1. LETROZOLE. [Concomitant]
     Active Substance: LETROZOLE
     Indication: BREAST CANCER
     Dosage: UNK
  2. IBRANCE [Suspect]
     Active Substance: PALBOCICLIB
     Dosage: UNK
     Route: 048
  3. IBRANCE [Suspect]
     Active Substance: PALBOCICLIB
     Dosage: UNK
     Route: 048
  4. IBRANCE [Suspect]
     Active Substance: PALBOCICLIB
     Indication: BREAST CANCER METASTATIC
     Dosage: 125 MG, CYCLIC (DAY 1-21 Q 28 DAY)
     Route: 048
     Dates: start: 20151107
  5. IBRANCE [Suspect]
     Active Substance: PALBOCICLIB
     Dosage: 125 MG, CYCLIC (DAYS 1-21 OF 28 DAYS)
     Route: 048
     Dates: start: 20151107
  6. IBRANCE [Suspect]
     Active Substance: PALBOCICLIB
     Dosage: UNK
     Route: 048
  7. IBRANCE [Suspect]
     Active Substance: PALBOCICLIB
     Dosage: UNK
     Route: 048
  8. IBRANCE [Suspect]
     Active Substance: PALBOCICLIB
     Dosage: UNK
     Route: 048
  9. IBRANCE [Suspect]
     Active Substance: PALBOCICLIB
     Dosage: UNK
     Route: 048
  10. IBRANCE [Suspect]
     Active Substance: PALBOCICLIB
     Dosage: UNK
     Route: 048
  11. IBRANCE [Suspect]
     Active Substance: PALBOCICLIB
     Dosage: 125 MG, CYCLIC (DAYS 1-21 Q28 DAYS)
     Route: 048
  12. IBRANCE [Suspect]
     Active Substance: PALBOCICLIB
     Dosage: 125 MG, CYCLIC (DAYS 1-21 Q28 DAYS)
     Route: 048
  13. IBRANCE [Suspect]
     Active Substance: PALBOCICLIB
     Dosage: 125 MG, CYCLIC (DAYS 1-21 Q28 DAYS)
     Route: 048
  14. IBRANCE [Suspect]
     Active Substance: PALBOCICLIB
     Dosage: 125 MG, CYCLIC (DAYS 1-21 Q28 DAYS)
     Route: 048

REACTIONS (44)
  - Choking [Unknown]
  - Swelling [Unknown]
  - Hiatus hernia [Unknown]
  - Eye allergy [Unknown]
  - Chest discomfort [Unknown]
  - Cough [Recovering/Resolving]
  - Diarrhoea [Unknown]
  - Thirst [Unknown]
  - Arthralgia [Unknown]
  - Lethargy [Unknown]
  - Palpitations [Unknown]
  - Anxiety [Unknown]
  - Rhinorrhoea [Recovering/Resolving]
  - Aphonia [Recovering/Resolving]
  - Arthropod bite [Unknown]
  - Epistaxis [Unknown]
  - Lacrimation increased [Unknown]
  - Eye discharge [Unknown]
  - Hypersomnia [Unknown]
  - Sialoadenitis [Unknown]
  - Drug dose omission [Unknown]
  - Pruritus [Unknown]
  - Swelling face [Unknown]
  - Constipation [Unknown]
  - Tooth loss [Unknown]
  - Pain [Unknown]
  - Somnolence [Unknown]
  - Nausea [Not Recovered/Not Resolved]
  - Vomiting [Not Recovered/Not Resolved]
  - Retracted nipple [Unknown]
  - Fatigue [Recovering/Resolving]
  - Hot flush [Unknown]
  - Sleep disorder [Unknown]
  - Hallucination, olfactory [Unknown]
  - Alopecia [Unknown]
  - Decreased appetite [Unknown]
  - Weight decreased [Unknown]
  - Irritability [Unknown]
  - Death [Fatal]
  - Weight increased [Unknown]
  - Insomnia [Unknown]
  - Headache [Unknown]
  - Depressed mood [Unknown]
  - Asthenia [Unknown]

NARRATIVE: CASE EVENT DATE: 20170701
